FAERS Safety Report 5496935-1 (Version None)
Quarter: 2007Q4

REPORT INFORMATION
  Report Type: 
  Country: None (occurrence: None)
  Receive Date: 20071023
  Receipt Date: 20071009
  Transmission Date: 20080405
  Serious: Yes (Hospitalization, Other)
  Sender: FDA-Public Use
  Company Number: 100#08#2007-04007

PATIENT
  Age: 30 Year
  Sex: Male

DRUGS (1)
  1. PHENYTOIN [Suspect]
     Indication: PROPHYLAXIS
     Dosage: 300 MG/DAY

REACTIONS (5)
  - CEREBELLAR ATAXIA [None]
  - DIPLOPIA [None]
  - DRUG TOXICITY [None]
  - DYSARTHRIA [None]
  - PARKINSONISM [None]
